FAERS Safety Report 6298590-X (Version None)
Quarter: 2009Q3

REPORT INFORMATION
  Report Type: 
  Country: None (occurrence: None)
  Receive Date: 20090805
  Receipt Date: 20090730
  Transmission Date: 20100115
  Serious: Yes (Hospitalization)
  Sender: FDA-Public Use
  Company Number: JP-AMGEN-US349439

PATIENT
  Sex: Female

DRUGS (11)
  1. ENBREL [Suspect]
     Indication: RHEUMATOID ARTHRITIS
     Route: 058
     Dates: start: 20080705, end: 20090516
  2. ENBREL [Suspect]
     Route: 058
     Dates: start: 20050601, end: 20080601
  3. RHEUMATREX [Suspect]
     Indication: RHEUMATOID ARTHRITIS
     Route: 048
     Dates: start: 20081220, end: 20090516
  4. RHEUMATREX [Suspect]
     Route: 048
     Dates: start: 20090516, end: 20090526
  5. PREDONINE [Concomitant]
     Indication: RHEUMATOID ARTHRITIS
     Route: 048
     Dates: start: 20051022, end: 20090526
  6. ALINAMIN F [Concomitant]
     Indication: NEURITIS
     Route: 048
     Dates: end: 20090526
  7. ZANTAC [Concomitant]
     Indication: GASTRIC ULCER
     Dosage: 300/DAY
     Route: 048
     Dates: start: 20090221, end: 20090526
  8. BONALON [Concomitant]
     Indication: OSTEOPOROSIS
     Route: 048
     Dates: end: 20090526
  9. ALOSENN [Concomitant]
     Indication: CONSTIPATION
     Route: 048
  10. EURODIN [Concomitant]
     Indication: INSOMNIA
     Route: 048
     Dates: end: 20090526
  11. MUCODYNE [Concomitant]
     Indication: BRONCHITIS
     Route: 048
     Dates: end: 20090526

REACTIONS (6)
  - ALANINE AMINOTRANSFERASE INCREASED [None]
  - ASPARTATE AMINOTRANSFERASE INCREASED [None]
  - BLOOD LACTATE DEHYDROGENASE INCREASED [None]
  - BONE MARROW FAILURE [None]
  - PULMONARY OEDEMA [None]
  - PYREXIA [None]
